FAERS Safety Report 6101934-2 (Version None)
Quarter: 2009Q1

REPORT INFORMATION
  Report Type: 
  Country: None (occurrence: None)
  Receive Date: 20090227
  Receipt Date: 20080528
  Transmission Date: 20090719
  Serious: Yes (Other)
  Sender: FDA-Public Use
  Company Number: 261787

PATIENT
  Age: 4 Year
  Sex: Male
  Weight: 20 kg

DRUGS (2)
  1. NUTROPIN AQ [Suspect]
     Indication: SMALL FOR DATES BABY
     Dosage: 0.7 MG, 7/WEEK, SUBCUTANEOUS
     Route: 058
     Dates: start: 20050218, end: 20080522
  2. POLY VI SOL (ASCORBIC ACID, CHOLECALCIFEROL, FOLIC ACID, VITAMIN A , V [Concomitant]

REACTIONS (1)
  - INTRACRANIAL PRESSURE INCREASED [None]
